FAERS Safety Report 18456033 (Version 3)
Quarter: 2021Q1

REPORT INFORMATION
  Report Type: Spontaneous
  Country: US (occurrence: US)
  Receive Date: 20201103
  Receipt Date: 20210203
  Transmission Date: 20210419
  Serious: No
  Sender: FDA-Public Use
  Company Number: US-ASTRAZENECA-2020SF42903

PATIENT
  Age: 868 Month
  Sex: Male
  Weight: 74.4 kg

DRUGS (1)
  1. BYDUREON BCISE [Suspect]
     Active Substance: EXENATIDE
     Indication: DIABETES MELLITUS
     Route: 058
     Dates: start: 202005

REACTIONS (5)
  - Device malfunction [Unknown]
  - Injection site haemorrhage [Unknown]
  - Device leakage [Unknown]
  - Injection site extravasation [Unknown]
  - Product dose omission issue [Unknown]

NARRATIVE: CASE EVENT DATE: 202010
